FAERS Safety Report 10282451 (Version 2)
Quarter: 2014Q3

REPORT INFORMATION
  Report Type: Spontaneous
  Country: GB (occurrence: GB)
  Receive Date: 20140707
  Receipt Date: 20140707
  Transmission Date: 20150326
  Serious: Yes (Other)
  Sender: FDA-Public Use
  Company Number: PHFR2014GB004598

PATIENT
  Age: 28 Year
  Sex: Male

DRUGS (1)
  1. CLOZARIL [Suspect]
     Active Substance: CLOZAPINE
     Dosage: UNK
     Route: 048
     Dates: start: 20140527

REACTIONS (4)
  - White blood cell count increased [Not Recovered/Not Resolved]
  - Neutrophil count increased [Recovered/Resolved]
  - Eosinophil count increased [Unknown]
  - Differential white blood cell count abnormal [Not Recovered/Not Resolved]

NARRATIVE: CASE EVENT DATE: 20140610
